FAERS Safety Report 10386222 (Version 2)
Quarter: 2014Q3

REPORT INFORMATION
  Report Type: Report from Study
  Country: FR (occurrence: FR)
  Receive Date: 20140814
  Receipt Date: 20140917
  Transmission Date: 20150326
  Serious: Yes (Hospitalization)
  Sender: FDA-Public Use
  Company Number: PHHO2014FR010837

PATIENT
  Age: 73 Year
  Sex: Female

DRUGS (23)
  1. SUCRALFATE. [Concomitant]
     Active Substance: SUCRALFATE
     Dosage: UNK
     Dates: end: 20130504
  2. CIFLOX [Concomitant]
     Active Substance: CIPROFLOXACIN
     Indication: URINARY TRACT INFECTION
     Dosage: UNK
     Dates: start: 20121201, end: 20121205
  3. PROTELOS [Concomitant]
     Active Substance: STRONTIUM RANELATE
     Dosage: UNK
     Dates: end: 20140428
  4. FLUID/ELECTROLYTE REPLACEMENT THERAPY [Concomitant]
     Active Substance: UNSPECIFIED INGREDIENT
     Indication: VOMITING
  5. SMECTA                             /00837601/ [Concomitant]
     Indication: DIARRHOEA
     Dosage: UNK
     Dates: start: 20120908, end: 20120909
  6. TIORFAN [Concomitant]
     Active Substance: RACECADOTRIL
     Indication: DIARRHOEA
     Dosage: UNK
     Dates: start: 20120908, end: 20120909
  7. PANSORAL [Concomitant]
     Indication: STOMATITIS
     Dosage: UNK
     Dates: end: 20130504
  8. NOROXINE [Concomitant]
     Active Substance: NORFLOXACIN
     Indication: CYSTITIS
     Dosage: UNK
     Dates: start: 20131212, end: 20131215
  9. LASILIX [Concomitant]
     Active Substance: FUROSEMIDE
     Indication: OEDEMA PERIPHERAL
     Dosage: UNK
     Dates: start: 20140109, end: 20140305
  10. DAFALGAN [Concomitant]
     Active Substance: ACETAMINOPHEN
     Indication: PAIN
     Dosage: UNK
  11. CLAMOXYL                                /NET/ [Concomitant]
     Indication: PROPHYLAXIS
     Dosage: UNK
     Dates: start: 20130410
  12. VOGALENE [Concomitant]
     Active Substance: METOPIMAZINE
     Indication: VOMITING
     Dosage: UNK
  13. FLUID/ELECTROLYTE REPLACEMENT THERAPY [Concomitant]
     Active Substance: UNSPECIFIED INGREDIENT
     Indication: DIARRHOEA
     Dosage: UNK
     Dates: start: 20140512, end: 20140516
  14. CREON [Concomitant]
     Active Substance: PANCRELIPASE AMYLASE\PANCRELIPASE LIPASE\PANCRELIPASE PROTEASE
     Indication: PANCREATIC CARCINOMA
     Dosage: UNK
  15. NOROXINE [Concomitant]
     Active Substance: NORFLOXACIN
     Indication: URINARY TRACT INFECTION
     Dosage: UNK
     Dates: start: 20140331, end: 20140403
  16. MIMPARA [Concomitant]
     Active Substance: CINACALCET HYDROCHLORIDE
     Indication: HYPERPARATHYROIDISM
     Dosage: UNK
     Dates: start: 20110510
  17. TIORFAN [Concomitant]
     Active Substance: RACECADOTRIL
     Dosage: UNK
     Dates: start: 20140429, end: 20140516
  18. IXPRIM [Concomitant]
     Active Substance: ACETAMINOPHEN\TRAMADOL HYDROCHLORIDE
     Indication: PAIN
     Dosage: UNK
     Dates: start: 20130204, end: 20140109
  19. DAFALGAN [Concomitant]
     Active Substance: ACETAMINOPHEN
     Indication: HEPATIC PAIN
  20. SUCRALFATE. [Concomitant]
     Active Substance: SUCRALFATE
     Indication: STOMATITIS
     Dosage: UNK
     Dates: start: 20130319, end: 20130322
  21. LANZOR [Concomitant]
     Active Substance: LANSOPRAZOLE
     Indication: PAIN
     Dosage: UNK
     Dates: start: 20130522
  22. AFINITOR [Suspect]
     Active Substance: EVEROLIMUS
     Indication: NEUROENDOCRINE TUMOUR
     Dosage: 10 MG, QD
     Route: 048
     Dates: start: 20120918
  23. DAFALGAN [Concomitant]
     Active Substance: ACETAMINOPHEN
     Indication: SINUSITIS

REACTIONS (1)
  - Lipoma [Recovered/Resolved]

NARRATIVE: CASE EVENT DATE: 20131021
